FAERS Safety Report 10246257 (Version 1)
Quarter: 2014Q2

REPORT INFORMATION
  Report Type: Spontaneous
  Country: US (occurrence: None)
  Receive Date: 20140617
  Receipt Date: 20140617
  Transmission Date: 20141212
  Serious: Yes (Hospitalization)
  Sender: FDA-Public Use
  Company Number: None

PATIENT
  Age: 70 Year
  Sex: Female

DRUGS (1)
  1. LEXAPRO [Suspect]
     Indication: HEADACHE

REACTIONS (4)
  - Feeling abnormal [None]
  - Loss of consciousness [None]
  - Blood sodium decreased [None]
  - Pallor [None]
